FAERS Safety Report 6541911-0 (Version None)
Quarter: 2010Q1

REPORT INFORMATION
  Report Type: 
  Country: None (occurrence: None)
  Receive Date: 20100119
  Receipt Date: 20100114
  Transmission Date: 20100710
  Serious: Yes (Death, Hospitalization)
  Sender: FDA-Public Use
  Company Number: AU-ASTRAZENECA-2009SE31128

PATIENT
  Age: 13 Year
  Sex: Female

DRUGS (1)
  1. SEROQUEL [Suspect]
     Dosage: 100 MG AM AND 200 MG PM
     Route: 048
     Dates: start: 20090604

REACTIONS (1)
  - CARDIOMYOPATHY [None]
